FAERS Safety Report 20341002 (Version 3)
Quarter: 2022Q1

REPORT INFORMATION
  Report Type: Spontaneous
  Country: FR (occurrence: FR)
  Receive Date: 20220117
  Receipt Date: 20220225
  Transmission Date: 20220423
  Serious: Yes (Hospitalization, Other)
  Sender: FDA-Public Use
  Company Number: FR-Accord-245902

PATIENT
  Age: 79 Year
  Sex: Male
  Weight: 74 kg

DRUGS (23)
  1. GEMCITABINE [Suspect]
     Active Substance: GEMCITABINE
     Indication: Product used for unknown indication
     Dosage: GEMCITABINE HYDROCHLORIDE?1Q2W
     Route: 042
     Dates: start: 20210715
  2. OXALIPLATIN [Suspect]
     Active Substance: OXALIPLATIN
     Indication: Product used for unknown indication
     Dosage: 1Q2W
     Route: 042
     Dates: start: 20210715
  3. OXALIPLATIN [Suspect]
     Active Substance: OXALIPLATIN
     Dosage: 1Q2W
     Route: 042
     Dates: start: 20211007
  4. EPCORITAMAB [Suspect]
     Active Substance: EPCORITAMAB
     Indication: Product used for unknown indication
     Dosage: FULL DOSE: 48 MILLIGRAM WEEKLY
     Route: 058
     Dates: start: 20210729, end: 20210930
  5. EPCORITAMAB [Suspect]
     Active Substance: EPCORITAMAB
     Dosage: PRIMINING DOSE: 0.16 MILLIGRAM, SINGLE
     Route: 058
     Dates: start: 20210715, end: 20210715
  6. EPCORITAMAB [Suspect]
     Active Substance: EPCORITAMAB
     Dosage: INTERMEDIATE DOSE: 0.8 MILLIGRAM, SINGLE
     Route: 058
     Dates: start: 20210722, end: 20210722
  7. EPCORITAMAB [Suspect]
     Active Substance: EPCORITAMAB
     Dosage: 1Q2W
     Route: 058
     Dates: start: 20211007
  8. EPCORITAMAB [Suspect]
     Active Substance: EPCORITAMAB
     Dosage: DOSE: 48 MG
     Route: 058
     Dates: start: 20211223
  9. EPCORITAMAB [Suspect]
     Active Substance: EPCORITAMAB
     Dosage: DOSE: 48 MG
     Route: 058
     Dates: start: 20220106
  10. EPCORITAMAB [Suspect]
     Active Substance: EPCORITAMAB
     Dosage: DOSE: 48 MG
     Route: 058
     Dates: start: 20211209
  11. ALBUMIN HUMAN [Concomitant]
     Active Substance: ALBUMIN HUMAN
     Indication: Product used for unknown indication
     Dates: start: 20211109, end: 20211109
  12. ALBUMIN HUMAN [Concomitant]
     Active Substance: ALBUMIN HUMAN
     Dates: start: 20211028, end: 20211125
  13. PANTOPRAZOLE [Concomitant]
     Active Substance: PANTOPRAZOLE
     Indication: Product used for unknown indication
     Dates: start: 20210613
  14. OCTREOTIDE [Concomitant]
     Active Substance: OCTREOTIDE
     Indication: Product used for unknown indication
     Dates: start: 2020
  15. VALACYCLOVIR HYDROCHLORIDE [Concomitant]
     Active Substance: VALACYCLOVIR HYDROCHLORIDE
     Indication: Product used for unknown indication
     Dates: start: 2020
  16. ACETAMINOPHEN [Concomitant]
     Active Substance: ACETAMINOPHEN
     Indication: Product used for unknown indication
     Dates: start: 20210708
  17. TOZINAMERAN [Concomitant]
     Active Substance: TOZINAMERAN
     Indication: Product used for unknown indication
     Dates: start: 20220107, end: 20220107
  18. IRBESARTAN [Concomitant]
     Active Substance: IRBESARTAN
     Indication: Product used for unknown indication
     Dates: start: 2017
  19. ALLOPURINOL [Concomitant]
     Active Substance: ALLOPURINOL
     Indication: Product used for unknown indication
     Dates: start: 20210711
  20. IMMUNE GLOBULIN NOS [Concomitant]
     Active Substance: IMMUNE GLOBULIN NOS
     Indication: Product used for unknown indication
     Dates: start: 20211125, end: 20211125
  21. APIXABAN [Concomitant]
     Active Substance: APIXABAN
     Indication: Product used for unknown indication
     Dates: start: 2020
  22. LINEZOLID [Concomitant]
     Active Substance: LINEZOLID
     Indication: Product used for unknown indication
     Dates: start: 20211021
  23. SULFAMETHOXAZOLE\TRIMETHOPRIM [Concomitant]
     Active Substance: SULFAMETHOXAZOLE\TRIMETHOPRIM
     Indication: Product used for unknown indication
     Dates: start: 2020

REACTIONS (2)
  - Ascites [Not Recovered/Not Resolved]
  - Off label use [Unknown]

NARRATIVE: CASE EVENT DATE: 20211021
